FAERS Safety Report 10369594 (Version 2)
Quarter: 2015Q4

REPORT INFORMATION
  Report Type: Spontaneous
  Country: US (occurrence: US)
  Receive Date: 20140807
  Receipt Date: 20151013
  Transmission Date: 20160304
  Serious: Yes (Other)
  Sender: FDA-Public Use
  Company Number: US-AMGEN INC.-USASP2014024459

PATIENT
  Age: 46 Year
  Sex: Female

DRUGS (15)
  1. NEUPOGEN [Suspect]
     Active Substance: FILGRASTIM
     Indication: BREAST CANCER FEMALE
     Dosage: 300 MUG, 1 IN 1 D
     Route: 065
     Dates: start: 20110926
  2. HERCEPTIN [Suspect]
     Active Substance: TRASTUZUMAB
     Indication: BREAST CANCER FEMALE
     Dosage: 289 MG, 1 IN 1 D
     Route: 042
     Dates: start: 20110919
  3. HERCEPTIN [Suspect]
     Active Substance: TRASTUZUMAB
     Dosage: 145 MG, 1 IN 1 D
     Route: 042
     Dates: start: 20110926
  4. BENADRYL [Concomitant]
     Active Substance: DIPHENHYDRAMINE HYDROCHLORIDE
     Dosage: 25 MG, 1 IN 1 D
     Route: 042
  5. PEPCID [Concomitant]
     Active Substance: FAMOTIDINE
     Dosage: 20 MG, UNK
     Route: 042
  6. ACETAMINOPHEN. [Concomitant]
     Active Substance: ACETAMINOPHEN
     Dosage: 650 MG, 1 IN 1 D
     Route: 048
     Dates: start: 20111212
  7. DOCETAXEL. [Concomitant]
     Active Substance: DOCETAXEL
     Dosage: 135 MG, UNK
     Route: 042
  8. DIPHENHYDRAMINE HCL [Concomitant]
     Active Substance: DIPHENHYDRAMINE HYDROCHLORIDE
     Dosage: 12.5 MG, 1 IN 1 D
     Route: 042
  9. ALOXI [Concomitant]
     Active Substance: PALONOSETRON HYDROCHLORIDE
     Dosage: 0.25 MG, 1 IN 1 D
     Route: 042
  10. TYLENOL [Concomitant]
     Active Substance: ACETAMINOPHEN
     Dosage: 1000 MG, 1 IN 1 D
     Route: 048
  11. NEULASTA [Suspect]
     Active Substance: PEGFILGRASTIM
     Indication: BREAST CANCER FEMALE
     Dosage: 6 MG, UNK
     Route: 065
     Dates: start: 20111122
  12. DEXAMETHASONE SODIUM PHOSPHATE. [Concomitant]
     Active Substance: DEXAMETHASONE SODIUM PHOSPHATE
     Dosage: 20 MG, QD
     Route: 042
  13. INFLUENZA VIRUS VACCINE [Concomitant]
     Active Substance: INFLUENZA VIRUS VACCINE
     Dosage: UNK
     Route: 030
     Dates: start: 20111003
  14. ZANTAC [Concomitant]
     Active Substance: RANITIDINE HYDROCHLORIDE
     Dosage: 50 MG, 1 IN 1 D
     Route: 042
  15. CARBOPLATIN. [Concomitant]
     Active Substance: CARBOPLATIN
     Dosage: 758 MG, UNK

REACTIONS (3)
  - Platelet count decreased [Unknown]
  - Pain [Unknown]
  - Fatigue [Unknown]
